FAERS Safety Report 22765702 (Version 2)
Quarter: 2023Q4

REPORT INFORMATION
  Report Type: Spontaneous
  Country: PT (occurrence: PT)
  Receive Date: 20230731
  Receipt Date: 20231006
  Transmission Date: 20240110
  Serious: Yes (Other)
  Sender: FDA-Public Use
  Company Number: PT-EMA-DD-20230621-225467-104822

PATIENT
  Age: 62 Year
  Sex: Male

DRUGS (3)
  1. AMLODIPINE [Suspect]
     Active Substance: AMLODIPINE BESYLATE
     Indication: Essential hypertension
  2. PERINDOPRIL [Suspect]
     Active Substance: PERINDOPRIL
     Indication: Hypertension
  3. LISINOPRIL [Concomitant]
     Active Substance: LISINOPRIL
     Indication: Essential hypertension

REACTIONS (3)
  - Granuloma annulare [Recovered/Resolved]
  - Rash macular [Recovered/Resolved]
  - Pruritus [Recovered/Resolved]
